FAERS Safety Report 18536393 (Version 2)
Quarter: 2020Q4

REPORT INFORMATION
  Report Type: Report from Study
  Country: US (occurrence: US)
  Receive Date: 20201124
  Receipt Date: 20201126
  Transmission Date: 20210114
  Serious: Yes (Death, Hospitalization, Other)
  Sender: FDA-Public Use
  Company Number: US-SUN PHARMACEUTICAL INDUSTRIES LTD-2020R1-268596

PATIENT
  Age: 76 Year
  Sex: Male

DRUGS (1)
  1. TILDRAKIZUMAB [Suspect]
     Active Substance: TILDRAKIZUMAB
     Indication: PSORIASIS
     Dosage: 100 MILLIGRAM, TID
     Route: 058
     Dates: start: 20200306

REACTIONS (1)
  - Intracranial aneurysm [Fatal]

NARRATIVE: CASE EVENT DATE: 202009
